FAERS Safety Report 5261342-3 (Version None)
Quarter: 2007Q1

REPORT INFORMATION
  Report Type: 
  Country: None (occurrence: None)
  Receive Date: 20070307
  Receipt Date: 20070220
  Transmission Date: 20070707
  Serious: No
  Sender: FDA-Public Use
  Company Number: T200700248

PATIENT
  Sex: Female

DRUGS (2)
  1. PHOSPHOCOL P32 [Suspect]
     Indication: OVARIAN CANCER
     Dosage: 555 MBQ, SINGLE, INTRAPERITONEAL
     Route: 033
  2. PHOSPHOCOL P32 [Suspect]
     Indication: RADIOTHERAPY
     Dosage: 555 MBQ, SINGLE, INTRAPERITONEAL
     Route: 033

REACTIONS (2)
  - ABDOMINAL ADHESIONS [None]
  - SMALL INTESTINAL OBSTRUCTION [None]
